FAERS Safety Report 8738776 (Version 2)
Quarter: 2013Q4

REPORT INFORMATION
  Report Type: Spontaneous
  Country: US (occurrence: US)
  Receive Date: 20120823
  Receipt Date: 20131101
  Transmission Date: 20140711
  Serious: No
  Sender: FDA-Public Use
  Company Number: US-009507513-1208USA000167

PATIENT
  Sex: 0

DRUGS (1)
  1. JANUMET XR [Suspect]
     Indication: DIABETES MELLITUS
     Dosage: 100 MG SITAGLIPTIN PHOSPHATE / 1000 MG METFORMIN HYDROCHLORIDE, QD
     Route: 048

REACTIONS (1)
  - Glycosylated haemoglobin decreased [Unknown]
